FAERS Safety Report 5534462-3 (Version None)
Quarter: 2007Q4

REPORT INFORMATION
  Report Type: 
  Country: None (occurrence: None)
  Receive Date: 20071205
  Receipt Date: 20071129
  Transmission Date: 20080405
  Serious: Yes (Other)
  Sender: FDA-Public Use
  Company Number: B0498306A

PATIENT
  Age: 14 Year
  Sex: Male

DRUGS (4)
  1. LAMICTAL [Suspect]
     Indication: EPILEPSY
     Dosage: 37.5MG TWICE PER DAY
     Route: 065
  2. CATAPRES [Concomitant]
     Dosage: 100MG AT NIGHT
  3. VALPROATE SODIUM [Concomitant]
     Dosage: 100MG TWICE PER DAY
  4. UNKNOWN DRUG [Concomitant]
     Indication: ATTENTION DEFICIT/HYPERACTIVITY DISORDER
     Dosage: 40MG PER DAY
     Dates: start: 20071001

REACTIONS (7)
  - ANGER [None]
  - AUTONOMIC NERVOUS SYSTEM IMBALANCE [None]
  - CONVULSION [None]
  - DRUG INTERACTION [None]
  - HYPERHIDROSIS [None]
  - MEMORY IMPAIRMENT [None]
  - POLYDIPSIA [None]
